FAERS Safety Report 13194837 (Version 1)
Quarter: 2017Q1

REPORT INFORMATION
  Report Type: Spontaneous
  Country: US (occurrence: US)
  Receive Date: 20170207
  Receipt Date: 20170207
  Transmission Date: 20170428
  Serious: Yes (Death, Hospitalization)
  Sender: FDA-Public Use
  Company Number: US-ACTELION-A-US2017-149188

PATIENT
  Age: 79 Year
  Sex: Female

DRUGS (3)
  1. OPSUMIT [Suspect]
     Active Substance: MACITENTAN
     Indication: PULMONARY ARTERIAL HYPERTENSION
     Dosage: 10 MG, UNK
     Route: 048
     Dates: start: 20170101, end: 20170119
  2. ADEMPAS [Suspect]
     Active Substance: RIOCIGUAT
     Indication: PULMONARY ARTERIAL HYPERTENSION
     Dosage: UNK
     Route: 065
     Dates: start: 201701, end: 201701
  3. LASIX [Concomitant]
     Active Substance: FUROSEMIDE

REACTIONS (15)
  - Dizziness [Unknown]
  - Dyspnoea [Unknown]
  - Pulmonary congestion [Unknown]
  - Lung disorder [Unknown]
  - Malaise [Unknown]
  - Unevaluable event [Unknown]
  - General physical health deterioration [Unknown]
  - Disease progression [Fatal]
  - Carbon dioxide increased [Unknown]
  - Productive cough [Unknown]
  - Cardiac failure [Unknown]
  - Oxygen saturation decreased [Unknown]
  - Pulmonary arterial hypertension [Fatal]
  - Fluid retention [Unknown]
  - Pneumothorax [Unknown]

NARRATIVE: CASE EVENT DATE: 201701
